FAERS Safety Report 22390186 (Version 3)
Quarter: 2024Q4

REPORT INFORMATION
  Report Type: Spontaneous
  Country: US (occurrence: US)
  Receive Date: 20230531
  Receipt Date: 20241211
  Transmission Date: 20250114
  Serious: No
  Sender: PFIZER
  Company Number: US-PFIZER INC-PV202300094758

PATIENT
  Age: 67 Year
  Sex: Female

DRUGS (2)
  1. XELJANZ XR [Suspect]
     Active Substance: TOFACITINIB CITRATE
     Dosage: 11 MG
  2. BIOACTIVE [Concomitant]
     Dosage: UNK

REACTIONS (4)
  - Gait disturbance [Unknown]
  - Musculoskeletal stiffness [Unknown]
  - Pain [Unknown]
  - Arthritis [Unknown]
